FAERS Safety Report 18231499 (Version 3)
Quarter: 2020Q3

REPORT INFORMATION
  Report Type: Spontaneous
  Country: CH (occurrence: CH)
  Receive Date: 20200904
  Receipt Date: 20200915
  Transmission Date: 20201103
  Serious: Yes (Death, Other)
  Sender: FDA-Public Use
  Company Number: CH-B.I. PHARMACEUTICALS,INC./RIDGEFIELD-2019-BI-107515

PATIENT
  Age: 76 Year
  Sex: Female
  Weight: 50 kg

DRUGS (2)
  1. GILOTRIF [Suspect]
     Active Substance: AFATINIB
     Indication: LUNG NEOPLASM MALIGNANT
     Route: 065
     Dates: start: 20191018, end: 20200610
  2. GILOTRIF [Suspect]
     Active Substance: AFATINIB
     Indication: EGFR GENE MUTATION
     Dates: start: 20190927, end: 20191017

REACTIONS (9)
  - Cachexia [Fatal]
  - Pneumonia aspiration [Not Recovered/Not Resolved]
  - Metastases to central nervous system [Fatal]
  - Off label use [Unknown]
  - Asthenia [Fatal]
  - Haemorrhage intracranial [Fatal]
  - Epilepsy [Unknown]
  - Diarrhoea [Unknown]
  - Disease progression [Fatal]

NARRATIVE: CASE EVENT DATE: 20190927
